FAERS Safety Report 7794082-7 (Version None)
Quarter: 2011Q4

REPORT INFORMATION
  Report Type: 
  Country: None (occurrence: None)
  Receive Date: 20111004
  Receipt Date: 20110923
  Transmission Date: 20120403
  Serious: Yes (Other)
  Sender: FDA-Public Use
  Company Number: CA-JNJFOC-20110910876

PATIENT
  Sex: Female
  Weight: 92.8 kg

DRUGS (4)
  1. PANTOPRAZOLE SODIUM [Concomitant]
     Route: 065
  2. EXEMESTANE [Concomitant]
     Route: 065
  3. METHOTREXATE [Concomitant]
     Route: 065
  4. REMICADE [Suspect]
     Indication: RHEUMATOID ARTHRITIS
     Dosage: 100MG/VIAL
     Route: 042
     Dates: start: 20040719

REACTIONS (10)
  - PARAESTHESIA [None]
  - BLOOD PRESSURE INCREASED [None]
  - HEADACHE [None]
  - FATIGUE [None]
  - DYSPNOEA [None]
  - MYALGIA [None]
  - COUGH [None]
  - HYPERHIDROSIS [None]
  - INCREASED TENDENCY TO BRUISE [None]
  - INSOMNIA [None]
